FAERS Safety Report 7620365-7 (Version None)
Quarter: 2011Q3

REPORT INFORMATION
  Report Type: 
  Country: None (occurrence: None)
  Receive Date: 20110718
  Receipt Date: 20110718
  Transmission Date: 20111222
  Serious: No
  Sender: FDA-Public Use
  Company Number: None

PATIENT
  Age: 57 Year
  Sex: Male
  Weight: 117.93 kg

DRUGS (1)
  1. ZICAM NO-DRIP LIQUID NASAL GEL [Suspect]
     Indication: SINUSITIS
     Dosage: TWO SPRAYS IN EACH NOSTRIL
     Route: 045
     Dates: start: 20110713, end: 20110713

REACTIONS (1)
  - PRODUCT QUALITY ISSUE [None]
